FAERS Safety Report 6081333-2 (Version None)
Quarter: 2009Q1

REPORT INFORMATION
  Report Type: 
  Country: None (occurrence: None)
  Receive Date: 20090218
  Receipt Date: 20090216
  Transmission Date: 20090719
  Serious: Yes (Other)
  Sender: FDA-Public Use
  Company Number: US-BAYER-200913342GPV

PATIENT
  Age: 66 Year
  Sex: Male

DRUGS (4)
  1. MAGNEVIST [Suspect]
     Indication: NUCLEAR MAGNETIC RESONANCE IMAGING
     Route: 042
     Dates: start: 20020101
  2. MAGNEVIST [Suspect]
     Route: 042
  3. MAGNEVIST [Suspect]
     Route: 042
  4. MAGNEVIST [Suspect]
     Route: 042

REACTIONS (3)
  - NEPHROGENIC SYSTEMIC FIBROSIS [None]
  - SKIN HYPERPIGMENTATION [None]
  - SKIN INDURATION [None]
